FAERS Safety Report 14965468 (Version 1)
Quarter: 2018Q2

REPORT INFORMATION
  Report Type: Spontaneous
  Country: GB (occurrence: GB)
  Receive Date: 20180601
  Receipt Date: 20180601
  Transmission Date: 20180711
  Serious: Yes (Death)
  Sender: FDA-Public Use
  Company Number: GB-ANIPHARMA-2018-UK-000054

PATIENT
  Age: 75 Year
  Sex: Female
  Weight: 54 kg

DRUGS (12)
  1. ANASTROZOLE. [Suspect]
     Active Substance: ANASTROZOLE
     Indication: BREAST CANCER
     Route: 048
  2. VITAMIN D3 [Concomitant]
     Active Substance: CHOLECALCIFEROL
     Route: 065
  3. IBANDRONATE SODIUM. [Concomitant]
     Active Substance: IBANDRONATE SODIUM
     Route: 065
  4. FASLODEX [Suspect]
     Active Substance: FULVESTRANT
     Dosage: 500MG MONTH
     Route: 058
     Dates: start: 201211, end: 201711
  5. TAMOXIFEN [Suspect]
     Active Substance: TAMOXIFEN
     Route: 048
     Dates: start: 200912
  6. FERROUS SULFATE. [Concomitant]
     Active Substance: FERROUS SULFATE
     Route: 065
  7. LOPERAMIDE [Concomitant]
     Active Substance: LOPERAMIDE
     Route: 065
  8. EXEMESTANE. [Concomitant]
     Active Substance: EXEMESTANE
     Route: 065
     Dates: start: 200912
  9. FASLODEX [Suspect]
     Active Substance: FULVESTRANT
     Dosage: 500MG MONTH
     Route: 058
  10. DENOSUMAB [Concomitant]
     Active Substance: DENOSUMAB
     Route: 065
  11. CODEINE [Concomitant]
     Active Substance: CODEINE
     Route: 065
  12. ZOPICLONE [Concomitant]
     Active Substance: ZOPICLONE
     Route: 065

REACTIONS (8)
  - Malignant neoplasm progression [Not Recovered/Not Resolved]
  - Hepatic function abnormal [Fatal]
  - Metastases to liver [Not Recovered/Not Resolved]
  - Chronic hepatic failure [Unknown]
  - Hepatic cirrhosis [Fatal]
  - Peritoneal disorder [Not Recovered/Not Resolved]
  - Liver disorder [Fatal]
  - Metastases to bone [Not Recovered/Not Resolved]

NARRATIVE: CASE EVENT DATE: 201211
